FAERS Safety Report 14769003 (Version 2)
Quarter: 2018Q2

REPORT INFORMATION
  Report Type: Spontaneous
  Country: DE (occurrence: DE)
  Receive Date: 20180417
  Receipt Date: 20180427
  Transmission Date: 20180711
  Serious: Yes (Other)
  Sender: FDA-Public Use
  Company Number: DE-LPDUSPRD-20180568

PATIENT
  Age: 37 Year
  Sex: Female

DRUGS (5)
  1. FERINJECT [Suspect]
     Active Substance: FERRIC CARBOXYMALTOSE
     Dosage: 500 MG
     Route: 041
     Dates: start: 20180319, end: 20180319
  2. IRON [Concomitant]
     Active Substance: IRON
     Dosage: UNKNOWN
     Route: 048
  3. FOLIC ACID. [Concomitant]
     Active Substance: FOLIC ACID
     Dosage: UNKNOWN
     Route: 065
  4. JUBRELE 75 [Concomitant]
     Dosage: UNKNOWN
     Route: 065
     Dates: start: 20180319
  5. FERRO-FOLGAMMA [Suspect]
     Active Substance: CYANOCOBALAMIN\FERROUS SULFATE\FOLIC ACID
     Dosage: UNKNOWN
     Route: 065
     Dates: start: 20180314

REACTIONS (7)
  - Hyperhidrosis [Unknown]
  - Dyspnoea [Unknown]
  - Back pain [Unknown]
  - Chest pain [Unknown]
  - Dizziness [Unknown]
  - Chest discomfort [Unknown]
  - Incorrect drug administration duration [Unknown]

NARRATIVE: CASE EVENT DATE: 20180319
